FAERS Safety Report 24634568 (Version 1)
Quarter: 2024Q4

REPORT INFORMATION
  Report Type: Spontaneous
  Country: JP (occurrence: JP)
  Receive Date: 20241119
  Receipt Date: 20241119
  Transmission Date: 20250115
  Serious: Yes (Other)
  Sender: SANOFI AVENTIS
  Company Number: JP-SA-2024SA330247

PATIENT
  Age: 25 Year
  Sex: Male

DRUGS (1)
  1. REZUROCK [Suspect]
     Active Substance: BELUMOSUDIL
     Dosage: 200 MG, QD
     Route: 048

REACTIONS (3)
  - Acute myeloid leukaemia recurrent [Unknown]
  - Graft versus host disease in eye [Unknown]
  - Quality of life decreased [Unknown]
